FAERS Safety Report 21371631 (Version 1)
Quarter: 2022Q3

REPORT INFORMATION
  Report Type: Spontaneous
  Country: US (occurrence: None)
  Receive Date: 20220922
  Receipt Date: 20220922
  Transmission Date: 20221026
  Serious: Yes (Other)
  Sender: FDA-Public Use
  Company Number: None

PATIENT
  Age: 77 Year

DRUGS (10)
  1. NOURIANZ [Suspect]
     Active Substance: ISTRADEFYLLINE
     Dosage: FREQUENCY : DAILY;?
     Route: 048
     Dates: start: 20201111
  2. MIRALAX [Concomitant]
     Active Substance: POLYETHYLENE GLYCOL 3350
  3. METOPROLOL [Concomitant]
  4. AVODART [Concomitant]
     Active Substance: DUTASTERIDE
  5. FLUDROCORTISONE [Concomitant]
     Active Substance: FLUDROCORTISONE
  6. POTASSIUM CIT [Concomitant]
  7. VYTORIN [Concomitant]
  8. CARBIDOPA\LEVODOPA [Concomitant]
     Active Substance: CARBIDOPA\LEVODOPA
  9. MYRBETRIQ [Concomitant]
     Active Substance: MIRABEGRON
  10. RASAGILINE [Concomitant]
     Active Substance: RASAGILINE

REACTIONS (2)
  - Fall [None]
  - Head injury [None]

NARRATIVE: CASE EVENT DATE: 20220814
